FAERS Safety Report 5401137-0 (Version None)
Quarter: 2007Q3

REPORT INFORMATION
  Report Type: 
  Country: None (occurrence: None)
  Receive Date: 20070731
  Receipt Date: 20070723
  Transmission Date: 20080115
  Serious: Yes (Other)
  Sender: FDA-Public Use
  Company Number: PHBS2007DE12394

PATIENT
  Age: 75 Year
  Sex: Female

DRUGS (1)
  1. ZOLEDRONIC ACID [Suspect]
     Route: 042

REACTIONS (7)
  - BONE DEBRIDEMENT [None]
  - IMPAIRED HEALING [None]
  - MUCOSAL EROSION [None]
  - OSTEONECROSIS [None]
  - PAIN IN JAW [None]
  - THERAPEUTIC PROCEDURE [None]
  - TOOTH EXTRACTION [None]
